FAERS Safety Report 6053887-3 (Version None)
Quarter: 2009Q1

REPORT INFORMATION
  Report Type: 
  Country: None (occurrence: None)
  Receive Date: 20090123
  Receipt Date: 20090114
  Transmission Date: 20090719
  Serious: Yes (Other)
  Sender: FDA-Public Use
  Company Number: US024712

PATIENT
  Age: 48 Year
  Sex: Male
  Weight: 130.1 kg

DRUGS (8)
  1. PROVIGIL [Suspect]
     Indication: SLEEP APNOEA SYNDROME
     Dosage: 100 MG QD ORAL
     Route: 048
     Dates: start: 20050101, end: 20080101
  2. PROVIGIL [Suspect]
     Indication: SLEEP APNOEA SYNDROME
     Dosage: 200 MG QD ORAL
     Route: 048
     Dates: start: 20080101
  3. BUSCOPAN [Concomitant]
  4. CODEINE PHOSPHATE [Concomitant]
  5. AMITRIPTYLINE HCL [Concomitant]
  6. RABEPRAZOLE SODIUM [Concomitant]
  7. VOLTAREN [Concomitant]
  8. LOPERAMIDE HCL [Concomitant]

REACTIONS (5)
  - CATECHOLAMINES URINE INCREASED [None]
  - HEADACHE [None]
  - HYPERHIDROSIS [None]
  - HYPERTENSION [None]
  - PSEUDOPHAEOCHROMOCYTOMA [None]
